FAERS Safety Report 24440866 (Version 2)
Quarter: 2024Q4

REPORT INFORMATION
  Report Type: Report from Study
  Country: EG (occurrence: EG)
  Receive Date: 20241016
  Receipt Date: 20241017
  Transmission Date: 20250115
  Serious: No
  Sender: ROCHE
  Company Number: EG-ROCHE-3418911

PATIENT
  Age: 13 Year
  Sex: Male
  Weight: 60.0 kg

DRUGS (2)
  1. EMICIZUMAB [Suspect]
     Active Substance: EMICIZUMAB
     Indication: Factor VIII deficiency
     Route: 058
     Dates: start: 20220601
  2. EMICIZUMAB [Suspect]
     Active Substance: EMICIZUMAB
     Dosage: SUBSEQUENT DOSES DONE ON 19/JAN/2023, 02/FEB/2023, 17/FEB/2023, 02/MAR/2023, 16/MAR/2023, 30/MAR/202
     Route: 065
     Dates: start: 20221231

REACTIONS (1)
  - Synovial disorder [Recovering/Resolving]

NARRATIVE: CASE EVENT DATE: 20230617
